FAERS Safety Report 18995202 (Version 1)
Quarter: 2021Q1

REPORT INFORMATION
  Report Type: Spontaneous
  Country: CN (occurrence: CN)
  Receive Date: 20210310
  Receipt Date: 20210310
  Transmission Date: 20210420
  Serious: Yes (Other)
  Sender: FDA-Public Use
  Company Number: CN-BAXTER-2021BAX004419

PATIENT
  Age: 68 Year
  Sex: Female
  Weight: 48 kg

DRUGS (14)
  1. 0.9% SODIUM CHLORIDE INJECTION [Suspect]
     Active Substance: SODIUM CHLORIDE
     Indication: MEDICATION DILUTION
     Dosage: DAY 1, Q21D, 0.9% SODIUM CHLORIDE, 80 ML+PACLITAXEL (ALBUMIN BOUND) 350 MG IVGTT
     Route: 041
     Dates: start: 20210217, end: 20210217
  2. PALONOSETRON HYDROCHLORIDE. [Concomitant]
     Active Substance: PALONOSETRON HYDROCHLORIDE
     Indication: ANTIEMETIC SUPPORTIVE CARE
     Dosage: 0.9% SODIUM CHLORIDE INJECTION 100ML + PALONOSETRON HYDROCHLORIDE INJECTION 0.25 MG IVGTT QOD
     Route: 041
  3. CIMETIDINE [Concomitant]
     Active Substance: CIMETIDINE
     Indication: ANTIEMETIC SUPPORTIVE CARE
     Dosage: SODIUM CHLORIDE + CIMETIDINE + VITAMIN B6 + METOCLOPRAMIDE + DEXAMETHASONE
     Route: 041
  4. METOCLOPRAMIDE HYDROCHLORIDE. [Concomitant]
     Active Substance: METOCLOPRAMIDE HYDROCHLORIDE
     Indication: ANTIEMETIC SUPPORTIVE CARE
     Dosage: SODIUM CHLORIDE + CIMETIDINE + VITAMIN B6 + METOCLOPRAMIDE + DEXAMETHASONE
     Route: 041
  5. ENDOXAN [Suspect]
     Active Substance: CYCLOPHOSPHAMIDE
     Indication: BREAST CANCER
     Dosage: 0.9% SODIUM CHLORIDE INJECTION 100 ML+CYCLOPHOSPHAMIDE FOR INJECTION 800 MG, Q21D, D1
     Route: 041
     Dates: start: 20210217, end: 20210217
  6. 0.9% SODIUM CHLORIDE INJECTION [Suspect]
     Active Substance: SODIUM CHLORIDE
     Dosage: DAY 1, Q21D, 0.9% SODIUM CHLORIDE INJECTION 100 ML+CYCLOPHOSPHAMIDE FOR INJECTION 800 MG IVGTT
     Route: 041
     Dates: start: 20210217, end: 20210217
  7. SODIUM CHLORIDE. [Concomitant]
     Active Substance: SODIUM CHLORIDE
     Indication: MEDICATION DILUTION
     Dosage: SODIUM CHLORIDE + CIMETIDINE + VITAMIN B6 + METOCLOPRAMIDE + DEXAMETHASONE
     Route: 041
  8. DEXAMETHASONE SODIUM PHOSPHATE. [Concomitant]
     Active Substance: DEXAMETHASONE SODIUM PHOSPHATE
     Indication: ANTIEMETIC SUPPORTIVE CARE
     Dosage: SODIUM CHLORIDE + CIMETIDINE + VITAMIN B6 + METOCLOPRAMIDE + DEXAMETHASONE
     Route: 041
  9. VITAMIN B6 [Concomitant]
     Active Substance: PYRIDOXINE HYDROCHLORIDE
     Indication: ANTIEMETIC SUPPORTIVE CARE
     Dosage: SODIUM CHLORIDE + CIMETIDINE + VITAMIN B6 + METOCLOPRAMIDE + DEXAMETHASONE
     Route: 041
  10. 0.9% SODIUM CHLORIDE INJECTION [Suspect]
     Active Substance: SODIUM CHLORIDE
     Dosage: TARGETED THERAPY, 0.9% SODIUM CHLORIDE 250ML + TRASTUZUMAB 450 MG
     Route: 041
     Dates: start: 20210220, end: 20210220
  11. PACLITAXEL. [Suspect]
     Active Substance: PACLITAXEL
     Indication: BREAST CANCER
     Dosage: DAY 1, Q21D, 0.9% SODIUM CHLORIDE 80 ML + PACLITAXEL (ALBUMIN BOUND) 350 MG IVGTT
     Route: 041
     Dates: start: 20210217, end: 20210217
  12. TRASTUZUMAB. [Suspect]
     Active Substance: TRASTUZUMAB
     Indication: BREAST CANCER
     Dosage: TARGETED THERAPY, 0.9% SODIUM CHLORIDE 250ML + TRASTUZUMAB 450 MG
     Route: 041
     Dates: start: 20210220, end: 20210220
  13. RECOMBINANT HUMAN GRANULOCYTE STIMULATING FACTOR [Suspect]
     Active Substance: GRANULOCYTE COLONY-STIMULATING FACTOR NOS
     Indication: PROPHYLAXIS
     Route: 058
     Dates: start: 20210218, end: 20210222
  14. SODIUM CHLORIDE. [Concomitant]
     Active Substance: SODIUM CHLORIDE
     Dosage: 0.9% SODIUM CHLORIDE INJECTION 100ML + PALONOSETRON HYDROCHLORIDE INJECTION 0.25 MG IVGTT QOD
     Route: 041

REACTIONS (8)
  - Gastrooesophageal reflux disease [Recovering/Resolving]
  - Myelosuppression [Recovered/Resolved]
  - Nausea [Recovered/Resolved]
  - Leukostasis syndrome [Unknown]
  - Malaise [Recovered/Resolved]
  - Neurotoxicity [Recovering/Resolving]
  - Initial insomnia [Recovered/Resolved]
  - Regurgitation [Recovered/Resolved]

NARRATIVE: CASE EVENT DATE: 202102
